FAERS Safety Report 5441688-6 (Version None)
Quarter: 2007Q3

REPORT INFORMATION
  Report Type: 
  Country: None (occurrence: None)
  Receive Date: 20070829
  Receipt Date: 20070815
  Transmission Date: 20080115
  Serious: Yes (Other)
  Sender: FDA-Public Use
  Company Number: 100#08#2007-03113

PATIENT
  Age: 77 Year
  Sex: Male

DRUGS (4)
  1. SERTRALINE [Suspect]
     Indication: DRUG USE FOR UNKNOWN INDICATION
     Dosage: 50-100 MG
  2. CAPTOPRIL (CAPTOPRIL) (CAPTOPRIL) [Concomitant]
  3. NPH INSULIN (INSULIN INJECTION, ISOPHANE) (NPH INSULIN) [Concomitant]
  4. ANTIBIOTICS (ANTIBIOTICS) (ANTIBIOTICS) [Concomitant]

REACTIONS (2)
  - INAPPROPRIATE ANTIDIURETIC HORMONE SECRETION [None]
  - URINARY TRACT INFECTION [None]
